FAERS Safety Report 13817351 (Version 1)
Quarter: 2017Q3

REPORT INFORMATION
  Report Type: Report from Study
  Country: GB (occurrence: GB)
  Receive Date: 20170731
  Receipt Date: 20170731
  Transmission Date: 20171127
  Serious: Yes (Other)
  Sender: FDA-Public Use
  Company Number: PHHY2017GB054544

PATIENT
  Sex: Male

DRUGS (1)
  1. OMNITROPE [Suspect]
     Active Substance: SOMATROPIN
     Indication: PRADER-WILLI SYNDROME
     Dosage: 1.2 MG, QD
     Route: 065
     Dates: start: 20150903

REACTIONS (5)
  - Wheezing [Unknown]
  - Haemorrhage [Unknown]
  - Headache [Unknown]
  - Respiration abnormal [Unknown]
  - Dyspnoea [Unknown]
